FAERS Safety Report 11524983 (Version 2)
Quarter: 2015Q3

REPORT INFORMATION
  Report Type: Spontaneous
  Country: US (occurrence: US)
  Receive Date: 20150918
  Receipt Date: 20150924
  Transmission Date: 20151125
  Serious: Yes (Other)
  Sender: FDA-Public Use
  Company Number: PHHY2015US111045

PATIENT
  Age: 55 Year
  Sex: Female

DRUGS (4)
  1. DASATINIB [Suspect]
     Active Substance: DASATINIB
     Indication: PHILADELPHIA CHROMOSOME POSITIVE
  2. IMATINIB [Suspect]
     Active Substance: IMATINIB
     Indication: CHRONIC MYELOID LEUKAEMIA
     Route: 065
  3. IMATINIB [Suspect]
     Active Substance: IMATINIB
     Indication: PHILADELPHIA CHROMOSOME POSITIVE
  4. DASATINIB [Suspect]
     Active Substance: DASATINIB
     Indication: CHRONIC MYELOID LEUKAEMIA
     Route: 065

REACTIONS (2)
  - Dermatitis allergic [Unknown]
  - Drug resistance [Unknown]
